FAERS Safety Report 10337831 (Version 2)
Quarter: 2014Q3

REPORT INFORMATION
  Report Type: Spontaneous
  Country: JP (occurrence: None)
  Receive Date: 20140722
  Receipt Date: 20140728
  Transmission Date: 20150326
  Serious: Yes (Death, Hospitalization)
  Sender: FDA-Public Use
  Company Number: AXC-2014-000446

PATIENT
  Age: 65 Year
  Sex: Male

DRUGS (3)
  1. URSODEOXYCHOLIC ACID [Suspect]
     Active Substance: URSODIOL
     Indication: HEPATITIS C
     Route: 048
     Dates: start: 20111221, end: 20121201
  2. PEGASYS [Suspect]
     Active Substance: PEGINTERFERON ALFA-2A
     Indication: HEPATITIS C
     Dosage: 180 DF
     Route: 058
     Dates: start: 20120409, end: 20121126
  3. COPEGUS [Suspect]
     Active Substance: RIBAVIRIN
     Indication: HEPATITIS C
     Route: 048
     Dates: start: 20120409, end: 20121126

REACTIONS (2)
  - Interstitial lung disease [None]
  - Feeling abnormal [None]

NARRATIVE: CASE EVENT DATE: 201211
